FAERS Safety Report 8882486 (Version 1)
Quarter: 2012Q4

REPORT INFORMATION
  Report Type: 
  Country: GB (occurrence: GB)
  Receive Date: 20121105
  Receipt Date: 20121105
  Transmission Date: 20130627
  Serious: Yes (Hospitalization, Other)
  Sender: FDA-Public Use
  Company Number: GB-JNJFOC-20121100838

PATIENT
  Sex: Male

DRUGS (3)
  1. CALPOL [Suspect]
     Route: 065
  2. CALPOL [Suspect]
     Indication: PYREXIA
     Route: 065
  3. EPILIM [Concomitant]
     Indication: EPILEPSY

REACTIONS (2)
  - Febrile convulsion [Unknown]
  - Epilepsy [Unknown]
